FAERS Safety Report 23486484 (Version 1)
Quarter: 2024Q1

REPORT INFORMATION
  Report Type: Other
  Country: US (occurrence: None)
  Receive Date: 20240206
  Receipt Date: 20240206
  Transmission Date: 20240410
  Serious: Yes (Life-Threatening, Hospitalization, Other)
  Sender: FDA-Public Use
  Company Number: US-Navinta LLC-000485

PATIENT
  Age: 67 Year
  Sex: Male

DRUGS (11)
  1. FAMOTIDINE [Suspect]
     Active Substance: FAMOTIDINE
     Indication: Angioedema
     Dosage: 40 MG IVP EVERY 12 HOURS
     Route: 042
  2. DIPHENHYDRAMINE [Suspect]
     Active Substance: DIPHENHYDRAMINE
     Indication: Angioedema
     Dosage: 25 MG IVP FOR EVERY 6 HOURS
     Route: 042
  3. DEXAMETHASONE [Suspect]
     Active Substance: DEXAMETHASONE
     Indication: Angioedema
     Dosage: 10 MG IVP
     Route: 042
  4. ASPIRIN [Concomitant]
     Active Substance: ASPIRIN
     Indication: Product used for unknown indication
     Dosage: 325 MG BY MOUTH ONCE DAILY
     Route: 048
  5. CARVEDILOL [Concomitant]
     Active Substance: CARVEDILOL
     Indication: Product used for unknown indication
     Dosage: 25 MG BY MOUTH TWICE DAILY
  6. LISINOPRIL AND HYDROCHLOROTHIAZIDE [Concomitant]
     Active Substance: HYDROCHLOROTHIAZIDE\LISINOPRIL
     Indication: Product used for unknown indication
     Dosage: 20 MG/25 MG BY MOUTH ONCE DAILY
     Route: 048
  7. NIFEDIPINE [Concomitant]
     Active Substance: NIFEDIPINE
     Indication: Product used for unknown indication
     Dosage: 30 MG BY MOUTH ONCE DAILY
     Route: 048
  8. POTASSIUM CHLORIDE [Concomitant]
     Active Substance: POTASSIUM CHLORIDE
     Indication: Product used for unknown indication
     Dosage: 15 MEQ BY MOUTH ONCE DAILY
     Route: 048
  9. TENECTEPLASE [Concomitant]
     Active Substance: TENECTEPLASE
     Indication: Product used for unknown indication
     Dosage: 25 MG INTRAVENOUS PUSH (IVP) OVER 10 SECONDS
     Route: 042
  10. LIFITEGRAST [Concomitant]
     Active Substance: LIFITEGRAST
     Indication: Product used for unknown indication
     Dosage: ONE DROP OF 5%
  11. FAMOTIDINE [Suspect]
     Active Substance: FAMOTIDINE
     Indication: Angioedema
     Dosage: 20 MG IVP
     Route: 042

REACTIONS (1)
  - Angioedema [Recovered/Resolved]
